FAERS Safety Report 24710228 (Version 1)
Quarter: 2024Q4

REPORT INFORMATION
  Report Type: Spontaneous
  Country: US (occurrence: US)
  Receive Date: 20241209
  Receipt Date: 20241209
  Transmission Date: 20250115
  Serious: No
  Sender: DR REDDYS
  Company Number: US-DRL-USA-SPO/USA/24/0017581

PATIENT
  Age: 13 Year
  Sex: Female

DRUGS (8)
  1. ACCUTANE [Suspect]
     Active Substance: ISOTRETINOIN
     Indication: Acne
     Dosage: (ISOTRETINOIN) CAPSULES 80MG
     Route: 048
  2. SULFAMETHOXAZOLE\TRIMETHOPRIM [Concomitant]
     Active Substance: SULFAMETHOXAZOLE\TRIMETHOPRIM
     Indication: Product used for unknown indication
     Dosage: 800-160 MG, 60 TABLETS
     Route: 048
  3. TRETINOIN [Concomitant]
     Active Substance: TRETINOIN
     Indication: Product used for unknown indication
     Dosage: APPLY A SMALL AMOUNT TO AFFECTED AREA EVERY NIGHT AT BEDTIME, 20 GRAMS
     Route: 065
  4. CLINDAMYCIN PHOSPHATE [Concomitant]
     Active Substance: CLINDAMYCIN PHOSPHATE
     Indication: Product used for unknown indication
     Dosage: APPLY 1 PLEDGETTE TO SKIN TWICE A DAY; 60 PLEDGETTES
     Route: 061
  5. ISOTRETINOIN [Concomitant]
     Active Substance: ISOTRETINOIN
     Indication: Product used for unknown indication
     Dosage: TAKE 2 CAPSULE BY MOUTH ONCE A DAY, 60 CAPSULES
     Route: 048
  6. MINOCYCLINE [Concomitant]
     Active Substance: MINOCYCLINE HYDROCHLORIDE
     Indication: Product used for unknown indication
     Dosage: TAKE 1 CAPSULE BY MOUTH TWICE A DAY, 60 CAPSULES
     Route: 048
  7. TRIAMCINOLONE ACETONIDE [Concomitant]
     Active Substance: TRIAMCINOLONE ACETONIDE
     Indication: Product used for unknown indication
     Dosage: APPLY A SMALL AMOUNT TO AFFECTED AREA TWICE A DAY, 30 GRAMS
     Route: 065
  8. Vitamin D HPI [Concomitant]
     Indication: Product used for unknown indication
     Route: 065

REACTIONS (5)
  - Acne [Not Recovered/Not Resolved]
  - Dermatitis acneiform [Unknown]
  - Pustule [Unknown]
  - Nodule [Unknown]
  - Cyst [Unknown]
